FAERS Safety Report 5048335-6 (Version None)
Quarter: 2006Q3

REPORT INFORMATION
  Report Type: 
  Country: None (occurrence: None)
  Receive Date: 20060711
  Receipt Date: 20060703
  Transmission Date: 20061208
  Serious: Yes (Other)
  Sender: FDA-Public Use
  Company Number: FR-BOEHRINGER INGELHEIM PHARMACEUTICALS, INC.-2006-FF-00563FF

PATIENT
  Sex: Female
  Weight: 50 kg

DRUGS (2)
  1. VIRAMUNE [Suspect]
     Indication: HIV INFECTION
     Route: 048
     Dates: start: 20040601
  2. COMBIVIR [Concomitant]
     Indication: HIV INFECTION
     Route: 048
     Dates: start: 20010830

REACTIONS (4)
  - DERMATITIS EXFOLIATIVE [None]
  - HYPERSENSITIVITY [None]
  - LYMPHADENOPATHY [None]
  - PYREXIA [None]
